FAERS Safety Report 7331416-1 (Version None)
Quarter: 2011Q1

REPORT INFORMATION
  Report Type: 
  Country: None (occurrence: None)
  Receive Date: 20110304
  Receipt Date: 20110225
  Transmission Date: 20110831
  Serious: Yes (Other)
  Sender: FDA-Public Use
  Company Number: BR-EISAI INC-E2020-08633-SPO-BR

PATIENT
  Sex: Male

DRUGS (2)
  1. ERANZ [Suspect]
     Route: 048
     Dates: start: 20110221, end: 20110221
  2. COUGH SYRUP [Concomitant]
     Dates: start: 20110201

REACTIONS (6)
  - HYPERSOMNIA [None]
  - ORAL DISCOMFORT [None]
  - VOMITING [None]
  - ACCIDENTAL DRUG INTAKE BY CHILD [None]
  - AGITATION [None]
  - SLUGGISHNESS [None]
